FAERS Safety Report 5971309-5 (Version None)
Quarter: 2008Q4

REPORT INFORMATION
  Report Type: 
  Country: None (occurrence: None)
  Receive Date: 20081128
  Receipt Date: 20081121
  Transmission Date: 20090506
  Serious: Yes (Hospitalization)
  Sender: FDA-Public Use
  Company Number: FR-PFIZER INC-2008099444

PATIENT
  Sex: Female

DRUGS (1)
  1. DOSTINEX [Suspect]
     Route: 048
     Dates: start: 20080201, end: 20080711

REACTIONS (3)
  - CONVULSION [None]
  - HEADACHE [None]
  - THROMBOPHLEBITIS [None]
